FAERS Safety Report 6439077-0 (Version None)
Quarter: 2009Q4

REPORT INFORMATION
  Report Type: 
  Country: None (occurrence: None)
  Receive Date: 20091110
  Receipt Date: 20091028
  Transmission Date: 20100525
  Serious: Yes (Other)
  Sender: FDA-Public Use
  Company Number: 2009SP022740

PATIENT
  Age: 47 Year
  Sex: Male
  Weight: 98.4306 kg

DRUGS (5)
  1. TINACTIN POWDER [Suspect]
     Indication: DRUG USE FOR UNKNOWN INDICATION
     Dosage: BID;TOP
     Route: 061
     Dates: start: 20090804, end: 20090807
  2. TINACTIN POWDER [Suspect]
     Indication: PRURITUS
     Dosage: BID;TOP
     Route: 061
     Dates: start: 20090804, end: 20090807
  3. TINACTIN POWDER [Suspect]
     Indication: THERMAL BURN
     Dosage: BID;TOP
     Route: 061
     Dates: start: 20090804, end: 20090807
  4. GLYBURIDE (CON.) [Concomitant]
  5. BENAZEPRIL (CON.0 [Concomitant]

REACTIONS (6)
  - ABASIA [None]
  - CELLULITIS [None]
  - HYPERSENSITIVITY [None]
  - OEDEMA PERIPHERAL [None]
  - THERMAL BURN [None]
  - TINEA PEDIS [None]
